FAERS Safety Report 24299580 (Version 1)
Quarter: 2024Q3

REPORT INFORMATION
  Report Type: Spontaneous
  Country: US (occurrence: None)
  Receive Date: 20240906
  Receipt Date: 20240906
  Transmission Date: 20241016
  Serious: Yes (Life-Threatening, Hospitalization)
  Sender: Public
  Company Number: None

PATIENT
  Age: 21 Year
  Sex: Female
  Weight: 48.5 kg

DRUGS (2)
  1. YESCARTA [Suspect]
     Active Substance: AXICABTAGENE CILOLEUCEL
     Indication: B-cell lymphoma
     Dosage: 68 ML ONCE INTRAVWENOUS DRIP
     Route: 041
     Dates: start: 20240729, end: 20240729
  2. CEFEPIME [Suspect]
     Active Substance: CEFEPIME HYDROCHLORIDE

REACTIONS (16)
  - Cytokine release syndrome [None]
  - Tachycardia [None]
  - Immune effector cell-associated neurotoxicity syndrome [None]
  - Arthralgia [None]
  - Metastases to central nervous system [None]
  - Pain in extremity [None]
  - Neck pain [None]
  - Encephalopathy [None]
  - Hallucination [None]
  - Headache [None]
  - Nausea [None]
  - Vomiting [None]
  - Hypotension [None]
  - Posterior reversible encephalopathy syndrome [None]
  - Disease progression [None]
  - Presyncope [None]

NARRATIVE: CASE EVENT DATE: 20240803
